FAERS Safety Report 4891122-X (Version None)
Quarter: 2006Q1

REPORT INFORMATION
  Report Type: 
  Country: None (occurrence: None)
  Receive Date: 20060125
  Receipt Date: 20041103
  Transmission Date: 20060701
  Serious: Yes (Hospitalization)
  Sender: FDA-Public Use
  Company Number: US-MERCK-0411USA00656

PATIENT
  Age: 66 Year
  Sex: Female
  Weight: 54 kg

DRUGS (2)
  1. VIOXX [Suspect]
     Indication: ARTHRITIS
     Route: 048
     Dates: start: 19990901, end: 20010701
  2. VIOXX [Suspect]
     Indication: PAIN
     Route: 048
     Dates: start: 19990901, end: 20010701

REACTIONS (11)
  - ANXIETY [None]
  - ASTHMA [None]
  - CHEST PAIN [None]
  - CONSTIPATION [None]
  - DEPRESSION [None]
  - EMBOLIC CEREBRAL INFARCTION [None]
  - ENCEPHALOPATHY [None]
  - HYPERTENSION [None]
  - SPINAL OSTEOARTHRITIS [None]
  - TENDONITIS [None]
  - URINARY TRACT INFECTION [None]
